FAERS Safety Report 4899754-X (Version None)
Quarter: 2006Q1

REPORT INFORMATION
  Report Type: 
  Country: None (occurrence: None)
  Receive Date: 20060131
  Receipt Date: 20060123
  Transmission Date: 20060701
  Serious: Yes (Other)
  Sender: FDA-Public Use
  Company Number: 143769USA

PATIENT
  Age: 46 Year
  Sex: Female

DRUGS (7)
  1. COPAXONE [Suspect]
     Indication: MULTIPLE SCLEROSIS
     Dates: start: 20050910
  2. OXYBUTYNIN [Concomitant]
  3. AMANTADINE HCL [Concomitant]
  4. BACLOFEN [Concomitant]
  5. CYMBALTA [Concomitant]
  6. NORVASC [Concomitant]
  7. LOPRESSOR [Concomitant]

REACTIONS (5)
  - ANTINUCLEAR ANTIBODY POSITIVE [None]
  - INFLUENZA [None]
  - PNEUMONIA [None]
  - SINUSITIS [None]
  - SYSTEMIC LUPUS ERYTHEMATOSUS [None]
